FAERS Safety Report 4824017-8 (Version None)
Quarter: 2005Q4

REPORT INFORMATION
  Report Type: 
  Country: None (occurrence: None)
  Receive Date: 20051108
  Receipt Date: 20051102
  Transmission Date: 20060501
  Serious: Yes (Hospitalization)
  Sender: FDA-Public Use
  Company Number: TCI2005A04414

PATIENT
  Age: 8 Decade
  Sex: Female

DRUGS (4)
  1. LANSAP 800 (PREPARATION FOR ORAL USE (NOS)) [Suspect]
     Indication: GASTRIC ULCER
     Dosage: 1 CARD (0.5 CARD, 2 IN 1 D) PER ORAL
     Route: 048
     Dates: start: 20050923, end: 20050930
  2. LANSAP 800 (PREPARATION FOR ORAL USE (NOS)) [Suspect]
     Indication: HELICOBACTER INFECTION
     Dosage: 1 CARD (0.5 CARD, 2 IN 1 D) PER ORAL
     Route: 048
     Dates: start: 20050923, end: 20050930
  3. NORVASC [Concomitant]
  4. AMARYL (GLIMEPIRIDE) (TABLETS) [Concomitant]

REACTIONS (4)
  - DUODENAL ULCER [None]
  - GASTRIC ULCER [None]
  - HYPERGASTRINAEMIA [None]
  - MELAENA [None]
